FAERS Safety Report 20990068 (Version 1)
Quarter: 2022Q2

REPORT INFORMATION
  Report Type: Report from Study
  Country: US (occurrence: US)
  Receive Date: 20220621
  Receipt Date: 20220621
  Transmission Date: 20220721
  Serious: Yes (Hospitalization)
  Sender: FDA-Public Use
  Company Number: US-REGENERON PHARMACEUTICALS, INC.-2022-074629

PATIENT
  Age: 70 Year
  Sex: Female

DRUGS (2)
  1. CEMIPLIMAB [Suspect]
     Active Substance: CEMIPLIMAB
     Indication: Breast cancer metastatic
     Dosage: 350 MG, Q3W
     Route: 042
     Dates: start: 20220103, end: 20220509
  2. CAPECITABINE [Suspect]
     Active Substance: CAPECITABINE
     Indication: Breast cancer metastatic
     Dosage: 800 MG/M2, BID, 14 DAYS ON 7 DAYS OFF EVERY 3 WEEKS
     Route: 048
     Dates: start: 20220103, end: 20220509

REACTIONS (1)
  - Hyperglycaemia [Recovered/Resolved]

NARRATIVE: CASE EVENT DATE: 20220523
